FAERS Safety Report 20882155 (Version 1)
Quarter: 2022Q2

REPORT INFORMATION
  Report Type: Spontaneous
  Country: PL (occurrence: PL)
  Receive Date: 20220527
  Receipt Date: 20220527
  Transmission Date: 20220720
  Serious: Yes (Other)
  Sender: FDA-Public Use
  Company Number: None

PATIENT
  Age: 66 Year
  Sex: Female

DRUGS (4)
  1. LEUCOVORIN CALCIUM [Suspect]
     Active Substance: LEUCOVORIN CALCIUM
     Indication: Small intestine carcinoma
     Dosage: 368MG, DURATION 49DAYS
     Route: 042
     Dates: start: 20180717, end: 20180904
  2. FLUOROURACIL [Suspect]
     Active Substance: FLUOROURACIL
     Indication: Small intestine carcinoma
     Dosage: 1104MG, DURATION 49DAYS
     Route: 041
     Dates: start: 20180717, end: 20180904
  3. FLUOROURACIL [Suspect]
     Active Substance: FLUOROURACIL
     Dosage: 736MG, DURATION 49DAYS
     Route: 040
     Dates: start: 20180717, end: 20180904
  4. OXALIPLATIN [Suspect]
     Active Substance: OXALIPLATIN
     Indication: Small intestine carcinoma
     Dosage: 156.4MG, DURATION 49DAYS
     Route: 042
     Dates: start: 20180717, end: 20180904

REACTIONS (1)
  - Neutropenia [Unknown]

NARRATIVE: CASE EVENT DATE: 20180918
